FAERS Safety Report 7315469-2 (Version None)
Quarter: 2011Q1

REPORT INFORMATION
  Report Type: 
  Country: None (occurrence: None)
  Receive Date: 20110225
  Receipt Date: 20110223
  Transmission Date: 20110831
  Serious: Yes (Hospitalization)
  Sender: FDA-Public Use
  Company Number: AU-PFIZER INC-2011038883

PATIENT
  Age: 53 Year
  Sex: Female

DRUGS (3)
  1. ALDACTONE [Suspect]
     Indication: ALOPECIA
     Dosage: 100 MG, UNK
  2. ALDACTONE [Suspect]
     Dosage: 50 MG, UNK
  3. ALDACTONE [Suspect]
     Dosage: 100 MG, UNK
     Dates: start: 20110201

REACTIONS (8)
  - PYREXIA [None]
  - BLOOD GLUCOSE INCREASED [None]
  - SOMNOLENCE [None]
  - MUSCLE SPASMS [None]
  - ALOPECIA [None]
  - NAUSEA [None]
  - MALAISE [None]
  - CARBON DIOXIDE INCREASED [None]
